FAERS Safety Report 6580116-4 (Version None)
Quarter: 2010Q1

REPORT INFORMATION
  Report Type: 
  Country: None (occurrence: None)
  Receive Date: 20100212
  Receipt Date: 20100203
  Transmission Date: 20100710
  Serious: Yes (Hospitalization, Other)
  Sender: FDA-Public Use
  Company Number: CN-PFIZER INC-2010014009

PATIENT
  Age: 72 Year
  Sex: Male

DRUGS (4)
  1. LIPITOR [Suspect]
     Indication: CORONARY ARTERIAL STENT INSERTION
     Dosage: 20 MG, UNK
  2. ATORVASTATIN CALCIUM [Suspect]
     Dosage: 10 MG, DAILY
     Route: 048
  3. ATORVASTATIN CALCIUM [Suspect]
     Dosage: 20 MG, UNK
  4. PLAVIX [Suspect]
     Dosage: UNK
     Route: 048

REACTIONS (2)
  - BLOOD CREATINE PHOSPHOKINASE INCREASED [None]
  - MYOCARDIAL INFARCTION [None]
